FAERS Safety Report 6185486-7 (Version None)
Quarter: 2009Q2

REPORT INFORMATION
  Report Type: 
  Country: None (occurrence: None)
  Receive Date: 20090511
  Receipt Date: 20090504
  Transmission Date: 20091009
  Serious: Yes (Death, Hospitalization, Other)
  Sender: FDA-Public Use
  Company Number: PHHY2009FR16854

PATIENT
  Sex: Female

DRUGS (9)
  1. VISKEN [Suspect]
     Dosage: 7.5 MG/DAY
     Route: 048
     Dates: start: 20090112
  2. CALCIPARINE [Suspect]
     Dosage: UNK
     Route: 058
     Dates: start: 20090112, end: 20090117
  3. HEMIGOXINE NATIVELLE [Suspect]
     Dosage: 1 DF, QD
     Route: 048
     Dates: start: 20090116
  4. LACTULOSE [Concomitant]
  5. EQUANIL [Concomitant]
  6. BROMAZEPAM [Concomitant]
  7. PROPOFAN                           /01607901/ [Concomitant]
  8. LASIX [Concomitant]
  9. TIAPRIDAL [Concomitant]

REACTIONS (9)
  - DEEP VEIN THROMBOSIS [None]
  - GENERAL PHYSICAL HEALTH DETERIORATION [None]
  - HAEMATOMA [None]
  - HAEMORRHAGE [None]
  - HEPARIN-INDUCED THROMBOCYTOPENIA [None]
  - HEPARIN-INDUCED THROMBOCYTOPENIA TEST [None]
  - PLATELET AGGREGATION ABNORMAL [None]
  - PLATELET COUNT DECREASED [None]
  - PURPURA [None]
